FAERS Safety Report 7308701-2 (Version None)
Quarter: 2011Q1

REPORT INFORMATION
  Report Type: 
  Country: None (occurrence: None)
  Receive Date: 20110223
  Receipt Date: 20110210
  Transmission Date: 20110831
  Serious: Yes (Other)
  Sender: FDA-Public Use
  Company Number: PHRM2007FR02658

PATIENT
  Sex: Female
  Weight: 60 kg

DRUGS (5)
  1. ZOMETA [Suspect]
     Indication: BREAST CANCER
     Route: 042
     Dates: start: 20030701, end: 20071101
  2. DURAGESIC-100 [Concomitant]
     Dates: start: 20030701
  3. FEMARA [Suspect]
     Indication: BREAST CANCER
     Route: 048
     Dates: start: 20030701
  4. EFFERALGAN [Concomitant]
  5. DI-ANTALVIC [Concomitant]

REACTIONS (4)
  - PAIN IN JAW [None]
  - OSTEONECROSIS OF JAW [None]
  - MOUTH ULCERATION [None]
  - MASTICATION DISORDER [None]
